FAERS Safety Report 5153928-1 (Version None)
Quarter: 2006Q4

REPORT INFORMATION
  Report Type: 
  Country: None (occurrence: None)
  Receive Date: 20061120
  Receipt Date: 20060919
  Transmission Date: 20070319
  Serious: Yes (Hospitalization)
  Sender: FDA-Public Use
  Company Number: US-ROCHE-463850

PATIENT
  Age: 58 Year
  Sex: Female
  Weight: 92.8 kg

DRUGS (15)
  1. MYCOPHENOLATE MOFETIL [Suspect]
     Route: 048
     Dates: start: 20051102
  2. TACROLIMUS [Suspect]
     Route: 048
     Dates: start: 20051102, end: 20060912
  3. TACROLIMUS [Suspect]
     Route: 048
     Dates: start: 20060913
  4. CORTICOSTEROID NOS [Suspect]
     Route: 065
  5. METOPROLOL TARTRATE [Concomitant]
     Dates: start: 20060307
  6. SIMVASTATIN [Concomitant]
     Dates: start: 20060418
  7. BACTRIM [Concomitant]
     Dosage: NO DOSE FORM PROVIDED.
     Dates: start: 20051102
  8. PROTONIX [Concomitant]
     Dates: start: 20060308
  9. LASIX [Concomitant]
     Dosage: NO UNITS PROVIDED.
     Dates: start: 20060308
  10. FOLIC ACID [Concomitant]
     Dates: start: 20060223
  11. AVANDIA [Concomitant]
     Dates: start: 20051107
  12. LANTUS [Concomitant]
     Dates: start: 20051209
  13. M.V.I. [Concomitant]
     Dosage: NO UNITS PROVIDED.
     Dates: start: 20060206
  14. ASPIRIN [Concomitant]
     Dates: start: 20051125
  15. DIOVAN [Concomitant]
     Dates: start: 20060206

REACTIONS (4)
  - BLOOD CREATININE INCREASED [None]
  - IMMUNOSUPPRESSANT DRUG LEVEL INCREASED [None]
  - THERAPEUTIC AGENT TOXICITY [None]
  - WHITE BLOOD CELL COUNT DECREASED [None]
